FAERS Safety Report 8958797 (Version 2)
Quarter: 2014Q1

REPORT INFORMATION
  Report Type: Spontaneous
  Country: US (occurrence: US)
  Receive Date: 20121212
  Receipt Date: 20140324
  Transmission Date: 20141002
  Serious: Yes (Other)
  Sender: FDA-Public Use
  Company Number: US-BAYER-2012-129726

PATIENT
  Age: 17 Year
  Sex: Female
  Weight: 46.71 kg

DRUGS (5)
  1. YAZ [Suspect]
     Indication: CONTRACEPTION
     Dosage: UNK
     Dates: start: 2008, end: 2011
  2. BENTYL [Concomitant]
     Dosage: 20 MG, PRN
     Dates: start: 20091230
  3. PRILOSEC [Concomitant]
     Dosage: 20 MG, QD
     Dates: start: 20091230
  4. GUAIFENESIN [Concomitant]
     Dosage: 100-10 MG/5ML, 2 TEASPOONFUL EVERY 8 HOURS AS NEEDED
     Dates: start: 20091230
  5. FLUOXETINE [Concomitant]
     Dosage: 10 MG, QD
     Dates: start: 20091230

REACTIONS (2)
  - Cholecystectomy [None]
  - Cholecystitis [None]
